FAERS Safety Report 5061089-2 (Version None)
Quarter: 2006Q3

REPORT INFORMATION
  Report Type: 
  Country: None (occurrence: None)
  Receive Date: 20060725
  Receipt Date: 20060714
  Transmission Date: 20061208
  Serious: Yes (Other)
  Sender: FDA-Public Use
  Company Number: JP-ROCHE-456275

PATIENT
  Age: 14 Year
  Sex: Male

DRUGS (5)
  1. TAMIFLU [Suspect]
     Route: 048
     Dates: start: 20060625, end: 20060630
  2. CALONAL [Concomitant]
     Dates: start: 20060630
  3. MUCODYNE [Concomitant]
     Dosage: DOSE FORM REPORTED AS ORAL FORMULATION
     Route: 048
     Dates: start: 20060629, end: 20060715
  4. ASVERIN [Concomitant]
     Dosage: DOSE FORM REPORTED AS ORAL FORMULATION
     Route: 048
     Dates: start: 20060629, end: 20060629
  5. TRANSAMIN [Concomitant]
     Dosage: DOSE FORM REPORTED AS ORAL FORMULATION
     Route: 048

REACTIONS (1)
  - VISION BLURRED [None]
